FAERS Safety Report 6945345-6 (Version None)
Quarter: 2010Q3

REPORT INFORMATION
  Report Type: 
  Country: None (occurrence: None)
  Receive Date: 20100827
  Receipt Date: 20100822
  Transmission Date: 20110219
  Serious: Yes (Death)
  Sender: FDA-Public Use
  Company Number: BR-ROCHE-699255

PATIENT
  Sex: Female
  Weight: 67.7 kg

DRUGS (2)
  1. TOCILIZUMAB [Suspect]
     Indication: RHEUMATOID ARTHRITIS
     Dosage: LAST DOSE PRIOR TO SAE ON 31 MARCH 2010.
     Route: 042
     Dates: start: 20100105
  2. PLACEBO [Suspect]
     Indication: RHEUMATOID ARTHRITIS
     Dosage: LAST DOSE PRIOR TO SAE ON APRIL 2010.
     Route: 048
     Dates: start: 20001001

REACTIONS (1)
  - MENINGITIS [None]
